FAERS Safety Report 8594008 (Version 6)
Quarter: 2013Q3

REPORT INFORMATION
  Report Type: Report from Study
  Country: GB (occurrence: GB)
  Receive Date: 20120604
  Receipt Date: 20130802
  Transmission Date: 20140515
  Serious: Yes (Other)
  Sender: FDA-Public Use
  Company Number: GB-BAYER-2012-052538

PATIENT
  Age: 61 Year
  Sex: Male

DRUGS (4)
  1. SORAFENIB (RAF KINASE INHIBITOR) [Suspect]
     Indication: RENAL CELL CARCINOMA
     Dosage: 400 MG, QD (OD)
     Route: 048
     Dates: start: 20080116, end: 20110118
  2. RAMIPRIL [Concomitant]
     Dosage: 10 MG, QD
     Route: 048
     Dates: start: 2007
  3. AMLODIPINE [Concomitant]
     Dosage: UNK
     Dates: start: 2007
  4. BENDROFLUMETHIAZIDE [Concomitant]
     Dosage: UNK
     Dates: start: 2007

REACTIONS (1)
  - Squamous cell carcinoma of lung [Not Recovered/Not Resolved]
